FAERS Safety Report 8995694 (Version 1)
Quarter: 2013Q1

REPORT INFORMATION
  Report Type: Spontaneous
  Country: US (occurrence: US)
  Receive Date: 20130103
  Receipt Date: 20130103
  Transmission Date: 20140127
  Serious: No
  Sender: FDA-Public Use
  Company Number: US-ABBOTT-12P-163-0973889-00

PATIENT
  Sex: Female
  Weight: 50.85 kg

DRUGS (5)
  1. SYNTHROID [Suspect]
     Indication: HYPOTHYROIDISM
  2. SYNTHROID [Suspect]
  3. SYNTHROID [Suspect]
     Indication: HYPOTHYROIDISM
  4. CALCIUM [Concomitant]
     Indication: PRODUCT USED FOR UNKNOWN INDICATION
  5. IRON [Concomitant]
     Indication: PRODUCT USED FOR UNKNOWN INDICATION

REACTIONS (4)
  - Blood thyroid stimulating hormone increased [Unknown]
  - Asthenia [Not Recovered/Not Resolved]
  - Personality change [Recovered/Resolved]
  - Urinary tract infection [Recovering/Resolving]
